FAERS Safety Report 16527725 (Version 2)
Quarter: 2019Q3

REPORT INFORMATION
  Report Type: Spontaneous
  Country: JP (occurrence: JP)
  Receive Date: 20190703
  Receipt Date: 20190703
  Transmission Date: 20191004
  Serious: Yes (Hospitalization)
  Sender: FDA-Public Use
  Company Number: PHJP2019JP007906

PATIENT
  Age: 3 Year
  Sex: Female

DRUGS (1)
  1. CICLOSPORIN [Suspect]
     Active Substance: CYCLOSPORINE
     Indication: NEPHROTIC SYNDROME
     Dosage: UNK
     Route: 065

REACTIONS (7)
  - Abdominal pain [Recovering/Resolving]
  - Henoch-Schonlein purpura [Unknown]
  - Lymphadenopathy [Unknown]
  - Stomatitis [Unknown]
  - Pain in extremity [Unknown]
  - Purpura [Recovering/Resolving]
  - Pyrexia [Unknown]
